FAERS Safety Report 16891788 (Version 1)
Quarter: 2019Q4

REPORT INFORMATION
  Report Type: Spontaneous
  Country: US (occurrence: US)
  Receive Date: 20190813
  Receipt Date: 20190813
  Transmission Date: 20200122
  Serious: No
  Sender: FDA-Public Use
  Company Number: None

PATIENT
  Age: 46 Year
  Sex: Female

DRUGS (1)
  1. GLATIRAMER 40MG PFS INJ (12/BOX) [Suspect]
     Active Substance: GLATIRAMER
     Indication: MULTIPLE SCLEROSIS
     Route: 058
     Dates: start: 201906, end: 201908

REACTIONS (5)
  - Injection site erythema [None]
  - Injection site reaction [None]
  - Injection site swelling [None]
  - Product substitution issue [None]
  - Injection site pruritus [None]

NARRATIVE: CASE EVENT DATE: 20190813
